FAERS Safety Report 8163501-9 (Version None)
Quarter: 2012Q1

REPORT INFORMATION
  Report Type: 
  Country: None (occurrence: None)
  Receive Date: 20120224
  Receipt Date: 20120220
  Transmission Date: 20120608
  Serious: Yes (Other)
  Sender: FDA-Public Use
  Company Number: FR-MERCK-1202FRA00109

PATIENT
  Age: 80 Year
  Sex: Male
  Weight: 67 kg

DRUGS (10)
  1. GLICLAZIDE [Concomitant]
     Route: 048
     Dates: start: 20111213, end: 20120112
  2. LERCANIDIPINE HYDROCHLORIDE [Concomitant]
     Route: 048
     Dates: start: 20050101
  3. METFORMIN PAMOATE [Concomitant]
     Indication: DIABETES MELLITUS
     Route: 048
     Dates: end: 20120112
  4. ALLOPURINOL [Concomitant]
     Route: 048
     Dates: start: 20050101
  5. GLICLAZIDE [Concomitant]
     Indication: DIABETES MELLITUS
     Route: 048
     Dates: end: 20111212
  6. BETAXOLOL HYDROCHLORIDE [Concomitant]
     Route: 048
     Dates: start: 20000101
  7. JANUVIA [Suspect]
     Indication: DIABETES MELLITUS
     Route: 048
     Dates: start: 20100517, end: 20120112
  8. ASPIRIN LYSINE [Concomitant]
     Route: 048
     Dates: start: 20000101
  9. RAMIPRIL [Concomitant]
     Route: 048
     Dates: start: 20120112
  10. GLICLAZIDE [Concomitant]
     Route: 048
     Dates: start: 20120113

REACTIONS (1)
  - DIABETIC NEPHROPATHY [None]
